FAERS Safety Report 14509510 (Version 3)
Quarter: 2018Q1

REPORT INFORMATION
  Report Type: Spontaneous
  Country: DE (occurrence: DE)
  Receive Date: 20180209
  Receipt Date: 20180329
  Transmission Date: 20180509
  Serious: Yes (Hospitalization, Other)
  Sender: FDA-Public Use
  Company Number: DE-IPSEN BIOPHARMACEUTICALS, INC.-2018-02284

PATIENT
  Age: 66 Year
  Sex: Male
  Weight: 52 kg

DRUGS (10)
  1. 5-FU [Suspect]
     Active Substance: FLUOROURACIL
     Dosage: 650 MG
     Route: 040
     Dates: start: 20180103
  2. 5-FU [Suspect]
     Active Substance: FLUOROURACIL
     Dosage: 650 MG
     Route: 042
     Dates: start: 20171013
  3. FOLINIC ACID [Suspect]
     Active Substance: LEUCOVORIN
     Indication: COLORECTAL CANCER METASTATIC
     Dosage: 650 MG
     Dates: start: 20171013
  4. PANITUMUMAB [Suspect]
     Active Substance: PANITUMUMAB
     Indication: COLORECTAL CANCER METASTATIC
     Dosage: 360 MG
     Route: 042
     Dates: start: 20180103
  5. PEGYLATED LIPOSOMAL IRINOTECAN [Suspect]
     Active Substance: IRINOTECAN HYDROCHLORIDE
     Indication: COLORECTAL CANCER METASTATIC
     Dosage: 250 MG
     Route: 065
     Dates: start: 20180103
  6. 5-FU [Suspect]
     Active Substance: FLUOROURACIL
     Indication: COLORECTAL CANCER METASTATIC
     Dosage: 1900 MG
     Route: 042
     Dates: start: 20180103
  7. 5-FU [Suspect]
     Active Substance: FLUOROURACIL
     Dosage: 1900 MG
     Route: 042
     Dates: start: 20180104
  8. 5-FU [Suspect]
     Active Substance: FLUOROURACIL
     Dosage: 3600 MG
     Route: 042
     Dates: start: 20171013
  9. PEGYLATED LIPOSOMAL IRINOTECAN [Suspect]
     Active Substance: IRINOTECAN HYDROCHLORIDE
     Indication: OFF LABEL USE
     Dosage: 250 MG
     Route: 065
     Dates: start: 20171013
  10. CALCIUM FOLINATE [Suspect]
     Active Substance: LEUCOVORIN CALCIUM
     Indication: COLORECTAL CANCER METASTATIC
     Dosage: 650 MG
     Dates: start: 20180103

REACTIONS (4)
  - Catheter site thrombosis [Not Recovered/Not Resolved]
  - Off label use [Unknown]
  - Subclavian vein thrombosis [Not Recovered/Not Resolved]
  - Vena cava thrombosis [Not Recovered/Not Resolved]

NARRATIVE: CASE EVENT DATE: 20180114
